FAERS Safety Report 13929301 (Version 2)
Quarter: 2017Q4

REPORT INFORMATION
  Report Type: Report from Study
  Country: US (occurrence: US)
  Receive Date: 20170901
  Receipt Date: 20171212
  Transmission Date: 20180320
  Serious: Yes (Hospitalization)
  Sender: FDA-Public Use
  Company Number: US-ELI_LILLY_AND_COMPANY-US201708009321

PATIENT
  Age: 72 Year
  Sex: Female

DRUGS (6)
  1. PREDNISONE. [Suspect]
     Active Substance: PREDNISONE
     Dosage: UNK, UNKNOWN
     Route: 065
  2. TERIPARATIDE [Suspect]
     Active Substance: TERIPARATIDE
     Dosage: 20 UG, UNKNOWN
     Route: 058
     Dates: start: 201701
  3. PREDNISONE. [Suspect]
     Active Substance: PREDNISONE
     Dosage: 2.5 MG, EACH EVENING
     Route: 065
     Dates: start: 201609
  4. TERIPARATIDE [Suspect]
     Active Substance: TERIPARATIDE
     Indication: OSTEOPOROSIS
     Dosage: 20 UG, UNKNOWN
     Route: 058
     Dates: start: 20151216
  5. TERIPARATIDE [Suspect]
     Active Substance: TERIPARATIDE
     Dosage: 20 UG, UNKNOWN
     Route: 058
  6. PREDNISONE. [Suspect]
     Active Substance: PREDNISONE
     Indication: POLYMYALGIA RHEUMATICA
     Dosage: 2.5 MG, EACH MORNING
     Route: 065
     Dates: start: 201609

REACTIONS (12)
  - Kidney infection [Unknown]
  - Vomiting [Recovered/Resolved]
  - Nephrolithiasis [Recovered/Resolved]
  - Spinal fracture [Recovering/Resolving]
  - Polymyalgia rheumatica [Not Recovered/Not Resolved]
  - Sepsis [Recovered/Resolved]
  - Cataract [Unknown]
  - Red blood cell sedimentation rate increased [Unknown]
  - Back pain [Recovering/Resolving]
  - Weight increased [Recovering/Resolving]
  - Fractured coccyx [Recovered/Resolved]
  - Bone density decreased [Unknown]

NARRATIVE: CASE EVENT DATE: 201609
